FAERS Safety Report 21937308 (Version 1)
Quarter: 2023Q1

REPORT INFORMATION
  Report Type: Spontaneous
  Country: GB (occurrence: GB)
  Receive Date: 20230201
  Receipt Date: 20230201
  Transmission Date: 20230418
  Serious: Yes (Congenital Anomaly, Other)
  Sender: FDA-Public Use
  Company Number: None

PATIENT
  Age: 26 Year
  Sex: Female
  Weight: 136 kg

DRUGS (5)
  1. QUETIAPINE [Suspect]
     Active Substance: QUETIAPINE
     Indication: Affective disorder
     Dosage: 500 MILLIGRAM DAILY;
     Route: 065
     Dates: start: 20130505, end: 20221125
  2. ARIPIPRAZOLE [Concomitant]
     Active Substance: ARIPIPRAZOLE
     Indication: Affective disorder
     Dates: start: 20221125
  3. FLUOXETINE [Concomitant]
     Active Substance: FLUOXETINE HYDROCHLORIDE
     Indication: Anxiety
     Dates: start: 20190201
  4. FOLIC ACID [Concomitant]
     Active Substance: FOLIC ACID
     Indication: Vitamin supplementation
  5. PROPRANOLOL [Concomitant]
     Active Substance: PROPRANOLOL HYDROCHLORIDE
     Indication: Migraine
     Dates: start: 20090904

REACTIONS (11)
  - Renal function test abnormal [Not Recovered/Not Resolved]
  - Thyroid function test abnormal [Not Recovered/Not Resolved]
  - Heavy menstrual bleeding [Unknown]
  - Vaginal odour [Unknown]
  - Abortion spontaneous [Unknown]
  - Weight increased [Recovering/Resolving]
  - Somnolence [Recovering/Resolving]
  - Menstruation irregular [Recovering/Resolving]
  - Dizziness [Recovered/Resolved]
  - Headache [Recovered/Resolved]
  - Maternal exposure during pregnancy [Unknown]

NARRATIVE: CASE EVENT DATE: 20130515
